FAERS Safety Report 7822667-8 (Version None)
Quarter: 2011Q4

REPORT INFORMATION
  Report Type: 
  Country: None (occurrence: None)
  Receive Date: 20111018
  Receipt Date: 20111013
  Transmission Date: 20120403
  Serious: Yes (Life-Threatening, Other)
  Sender: FDA-Public Use
  Company Number: US-ASTRAZENECA-2011SE59303

PATIENT
  Age: 53 Year
  Sex: Female

DRUGS (2)
  1. CRESTOR [Suspect]
     Dosage: DAILY
     Route: 048
  2. CRESTOR [Suspect]
     Dosage: EVERY THREE DAYS
     Route: 048

REACTIONS (7)
  - COMA [None]
  - WRONG DRUG ADMINISTERED [None]
  - INAPPROPRIATE SCHEDULE OF DRUG ADMINISTRATION [None]
  - ROAD TRAFFIC ACCIDENT [None]
  - APPARENT DEATH [None]
  - HEAD INJURY [None]
  - EXPIRED DRUG ADMINISTERED [None]
